FAERS Safety Report 18363283 (Version 2)
Quarter: 2020Q4

REPORT INFORMATION
  Report Type: Spontaneous
  Country: US (occurrence: US)
  Receive Date: 20201008
  Receipt Date: 20201029
  Transmission Date: 20210114
  Serious: No
  Sender: FDA-Public Use
  Company Number: US-ASTRAZENECA-2020SF28837

PATIENT
  Sex: Female
  Weight: 108.9 kg

DRUGS (2)
  1. BYDUREON BCISE [Suspect]
     Active Substance: EXENATIDE
     Indication: DIABETES MELLITUS
     Route: 058
     Dates: start: 202003
  2. TRULICITY [Concomitant]
     Active Substance: DULAGLUTIDE

REACTIONS (5)
  - Injection site mass [Unknown]
  - Device malfunction [Unknown]
  - Device leakage [Unknown]
  - Incorrect dose administered by device [Unknown]
  - Wrong technique in device usage process [Unknown]
